FAERS Safety Report 17362476 (Version 2)
Quarter: 2020Q4

REPORT INFORMATION
  Report Type: Report from Study
  Country: RU (occurrence: RU)
  Receive Date: 20200203
  Receipt Date: 20201104
  Transmission Date: 20210113
  Serious: Yes (Other)
  Sender: FDA-Public Use
  Company Number: RU-JNJFOC-20200142566

PATIENT
  Sex: Male
  Weight: 104 kg

DRUGS (5)
  1. BISOPROLOL [Concomitant]
     Active Substance: BISOPROLOL
     Dosage: UNK
  2. LISINOPRIL. [Concomitant]
     Active Substance: LISINOPRIL
     Dosage: UNK
  3. RIVAROXABAN [Suspect]
     Active Substance: RIVAROXABAN
     Indication: THROMBOSIS PROPHYLAXIS
     Dosage: 10 MG, QD
     Route: 048
  4. INDAPAMIDE. [Concomitant]
     Active Substance: INDAPAMIDE
     Dosage: UNK
  5. FORMOTEROL [Concomitant]
     Active Substance: FORMOTEROL

REACTIONS (1)
  - Deep vein thrombosis [Unknown]
